FAERS Safety Report 7677375-3 (Version None)
Quarter: 2011Q3

REPORT INFORMATION
  Report Type: 
  Country: None (occurrence: None)
  Receive Date: 20110810
  Receipt Date: 20110810
  Transmission Date: 20111222
  Serious: No
  Sender: FDA-Public Use
  Company Number: None

PATIENT
  Sex: Female
  Weight: 64.4 kg

DRUGS (1)
  1. ENBREL [Suspect]
     Indication: RHEUMATOID ARTHRITIS
     Dosage: 50MG QW SC
     Route: 058
     Dates: start: 20110726, end: 20110802

REACTIONS (8)
  - OEDEMA PERIPHERAL [None]
  - PYREXIA [None]
  - FEELING ABNORMAL [None]
  - MALAISE [None]
  - INJECTION SITE RASH [None]
  - RASH [None]
  - CONTUSION [None]
  - SKIN DISORDER [None]
